FAERS Safety Report 8341315-4 (Version None)
Quarter: 2012Q2

REPORT INFORMATION
  Report Type: 
  Country: None (occurrence: None)
  Receive Date: 20120507
  Receipt Date: 20120502
  Transmission Date: 20120825
  Serious: Yes (Life-Threatening)
  Sender: FDA-Public Use
  Company Number: IT-BRACCO-001773

PATIENT
  Sex: Male

DRUGS (3)
  1. MULTIHANCE 0.5 [Suspect]
     Indication: NUCLEAR MAGNETIC RESONANCE IMAGING BRAIN
     Route: 042
     Dates: start: 20120423, end: 20120423
  2. OMEPRAZOLE [Concomitant]
     Route: 048
  3. COPAXONE [Concomitant]
     Dosage: 1 POSOLOGIC UNIT
     Route: 058

REACTIONS (2)
  - LARYNGEAL OEDEMA [None]
  - URTICARIA [None]
